FAERS Safety Report 5147840-1 (Version None)
Quarter: 2006Q4

REPORT INFORMATION
  Report Type: 
  Country: None (occurrence: None)
  Receive Date: 20060914
  Receipt Date: 20051118
  Transmission Date: 20070319
  Serious: Yes (Other)
  Sender: FDA-Public Use
  Company Number: 1-13377172

PATIENT
  Age: 37 Year
  Sex: Female

DRUGS (4)
  1. SULFAMETHOXAZOLE AND TRIMETHOPRIM [Suspect]
     Indication: KIDNEY INFECTION
     Dosage: ONE TABLET TWICE DAILY, ORAL
     Route: 048
     Dates: start: 20051101, end: 20051109
  2. PRENATAL VITAMINS [Concomitant]
  3. ZYRTEC-D [Concomitant]
  4. NASACORT [Concomitant]

REACTIONS (1)
  - ERYTHEMA MULTIFORME [None]
